FAERS Safety Report 15493687 (Version 1)
Quarter: 2018Q4

REPORT INFORMATION
  Report Type: Spontaneous
  Country: US (occurrence: US)
  Receive Date: 20181012
  Receipt Date: 20181012
  Transmission Date: 20190205
  Serious: No
  Sender: FDA-Public Use
  Company Number: US-ASTRAZENECA-2018SF17835

PATIENT
  Age: 101 Month
  Sex: Male
  Weight: 27.2 kg

DRUGS (2)
  1. ALBUTEROL. [Concomitant]
     Active Substance: ALBUTEROL
     Indication: ASTHMA
     Dosage: AS REQUIRED
     Route: 055
     Dates: start: 201807
  2. SYMBICORT [Suspect]
     Active Substance: BUDESONIDE\FORMOTEROL FUMARATE DIHYDRATE
     Indication: ASTHMA
     Dosage: 80/4.5 UG, 2 PUFFS, TWO TIMES A DAY
     Route: 055
     Dates: start: 201808

REACTIONS (5)
  - Cough [Not Recovered/Not Resolved]
  - Intentional device misuse [Recovered/Resolved]
  - Product use issue [Not Recovered/Not Resolved]
  - Product dose omission [Recovered/Resolved]
  - Off label use of device [Not Recovered/Not Resolved]

NARRATIVE: CASE EVENT DATE: 201808
